FAERS Safety Report 20201773 (Version 1)
Quarter: 2021Q4

REPORT INFORMATION
  Report Type: Spontaneous
  Country: NL (occurrence: NL)
  Receive Date: 20211217
  Receipt Date: 20211217
  Transmission Date: 20220304
  Serious: Yes (Other)
  Sender: FDA-Public Use
  Company Number: None

PATIENT
  Sex: Male

DRUGS (4)
  1. SIMVASTATIN [Suspect]
     Active Substance: SIMVASTATIN
     Indication: Disease risk factor
     Dosage: 40 MILLIGRAM DAILY; SIMVASTATINE TABLET FO 40MG / BRAND NAME NOT SPECIFIED
     Dates: start: 20211001, end: 20211115
  2. ASPIRIN [Concomitant]
     Active Substance: ASPIRIN
     Dosage: 80 MG; THERAPY START AND END DATE: ASKU; ACETYLSALICYLIC ACID TABLET 80MG / BRAND NAME NOT SPECIFIED
  3. PANTOPRAZOLE [Concomitant]
     Active Substance: PANTOPRAZOLE
     Dosage: 40 MG; THERAPY START AND END DATE: ASKU; PANTOPRAZOL TABLET MSR 40MG / BRAND NAME NOT SPECIFIED
  4. CLOPIDOGREL BESILATE [Concomitant]
     Active Substance: CLOPIDOGREL BESILATE
     Dosage: 75 MG; THERAPY START AND END DATE: ASKU; CLOPIDOGREL TABLET 75MG / GREPID TABLET FILM COATED 75MG

REACTIONS (1)
  - Polyneuropathy [Recovered/Resolved]
